FAERS Safety Report 9852724 (Version 1)
Quarter: 2014Q1

REPORT INFORMATION
  Report Type: Spontaneous
  Country: US (occurrence: None)
  Receive Date: 20140128
  Receipt Date: 20140128
  Transmission Date: 20141002
  Serious: Yes (Hospitalization)
  Sender: FDA-Public Use
  Company Number: None

PATIENT
  Age: 47 None
  Sex: Female

DRUGS (1)
  1. NAPROXEN [Suspect]
     Indication: INFLAMMATION
     Route: 048
     Dates: start: 201301, end: 201311

REACTIONS (6)
  - Abdominal pain upper [None]
  - Nausea [None]
  - Dizziness [None]
  - Hypertension [None]
  - Dyspepsia [None]
  - Ulcer [None]
